FAERS Safety Report 15751704 (Version 1)
Quarter: 2018Q4

REPORT INFORMATION
  Report Type: Report from Study
  Country: None (occurrence: US)
  Receive Date: 20181221
  Receipt Date: 20181221
  Transmission Date: 20190205
  Serious: Yes (Hospitalization)
  Sender: FDA-Public Use
  Company Number: US-ABBVIE-18K-163-2595112-00

PATIENT
  Age: 33 Year
  Sex: Female

DRUGS (1)
  1. HUMIRA [Suspect]
     Active Substance: ADALIMUMAB
     Indication: HIDRADENITIS
     Route: 058
     Dates: start: 20180711, end: 20181205

REACTIONS (3)
  - Ocular discomfort [Unknown]
  - Cerebral thrombosis [Unknown]
  - Ophthalmological examination abnormal [Unknown]

NARRATIVE: CASE EVENT DATE: 201811
